FAERS Safety Report 4526200-8 (Version None)
Quarter: 2004Q4

REPORT INFORMATION
  Report Type: 
  Country: None (occurrence: None)
  Receive Date: 20041210
  Receipt Date: 20041124
  Transmission Date: 20050328
  Serious: Yes (Hospitalization)
  Sender: FDA-Public Use
  Company Number: 04-0079 PO FOLLOW UP 1

PATIENT
  Age: 24 Year
  Sex: Male

DRUGS (4)
  1. PONSTEL [Suspect]
     Indication: INFLAMMATION
     Dosage: 1000 MG/BID/PO
     Route: 048
     Dates: start: 20040910, end: 20040911
  2. PONSTEL [Suspect]
     Indication: PAIN
     Dosage: 1000 MG/BID/PO
     Route: 048
     Dates: start: 20040910, end: 20040911
  3. VOLTAREN [Suspect]
     Indication: INFLAMMATION
     Dosage: 100 MG/ BID/ PO
     Route: 048
     Dates: start: 20040906, end: 20040909
  4. VOLTAREN [Suspect]
     Indication: PAIN
     Dosage: 100 MG/ BID/ PO
     Route: 048
     Dates: start: 20040906, end: 20040909

REACTIONS (7)
  - ANAEMIA [None]
  - COLITIS ULCERATIVE [None]
  - CROHN'S DISEASE [None]
  - DUODENAL ULCER [None]
  - HAEMATOCHEZIA [None]
  - LOSS OF CONSCIOUSNESS [None]
  - LYMPHOCYTE STIMULATION TEST POSITIVE [None]
